FAERS Safety Report 11510927 (Version 2)
Quarter: 2015Q3

REPORT INFORMATION
  Report Type: Spontaneous
  Country: US (occurrence: US)
  Receive Date: 20150915
  Receipt Date: 20150917
  Transmission Date: 20151125
  Serious: Yes (Other)
  Sender: FDA-Public Use
  Company Number: PHHY2015US109493

PATIENT
  Sex: Female

DRUGS (11)
  1. CICLOSPORIN [Suspect]
     Active Substance: CYCLOSPORINE
     Indication: BONE MARROW TRANSPLANT
     Route: 065
  2. TACROLIMUS. [Suspect]
     Active Substance: TACROLIMUS
     Indication: RENAL TRANSPLANT
     Route: 065
  3. LACTOFERRIN [Suspect]
     Active Substance: LACTOFERRIN
     Indication: ACUTE GRAFT VERSUS HOST DISEASE IN INTESTINE
  4. CICLOSPORIN [Suspect]
     Active Substance: CYCLOSPORINE
     Indication: PROPHYLAXIS AGAINST GRAFT VERSUS HOST DISEASE
  5. METHYLPREDNISOLONE. [Suspect]
     Active Substance: METHYLPREDNISOLONE
     Indication: CHRONIC GRAFT VERSUS HOST DISEASE
     Route: 065
  6. LACTOFERRIN [Suspect]
     Active Substance: LACTOFERRIN
     Indication: ACUTE GRAFT VERSUS HOST DISEASE IN SKIN
     Route: 065
  7. MYCOPHENOLATE MOFETIL. [Suspect]
     Active Substance: MYCOPHENOLATE MOFETIL
     Indication: CHRONIC GRAFT VERSUS HOST DISEASE
     Route: 065
  8. DACLIZUMAB [Suspect]
     Active Substance: DACLIZUMAB
     Indication: ACUTE GRAFT VERSUS HOST DISEASE IN SKIN
  9. METHOTREXATE [Suspect]
     Active Substance: METHOTREXATE
     Indication: BONE MARROW TRANSPLANT
     Route: 065
  10. METHOTREXATE [Suspect]
     Active Substance: METHOTREXATE
     Indication: PROPHYLAXIS AGAINST GRAFT VERSUS HOST DISEASE
  11. DACLIZUMAB [Suspect]
     Active Substance: DACLIZUMAB
     Indication: ACUTE GRAFT VERSUS HOST DISEASE IN INTESTINE
     Route: 065

REACTIONS (9)
  - Viral haemorrhagic cystitis [Unknown]
  - Chronic kidney disease [Unknown]
  - Chronic graft versus host disease [Unknown]
  - Acute graft versus host disease in skin [Unknown]
  - Condition aggravated [Unknown]
  - Acute graft versus host disease in intestine [Unknown]
  - Pneumonia pneumococcal [Unknown]
  - Herpes zoster infection neurological [Unknown]
  - BK virus infection [Unknown]
